FAERS Safety Report 9814691 (Version 1)
Quarter: 2014Q1

REPORT INFORMATION
  Report Type: Spontaneous
  Country: US (occurrence: US)
  Receive Date: 20140113
  Receipt Date: 20140113
  Transmission Date: 20141002
  Serious: Yes (Hospitalization)
  Sender: FDA-Public Use
  Company Number: US-SANOFI-AVENTIS-2012SA089945

PATIENT
  Age: 62 Year
  Sex: Female
  Weight: 63 kg

DRUGS (13)
  1. TAXOTERE [Suspect]
     Indication: PRODUCT USED FOR UNKNOWN INDICATION
     Route: 042
     Dates: start: 20081204
  2. CISPLATIN [Suspect]
     Indication: PRODUCT USED FOR UNKNOWN INDICATION
     Route: 033
     Dates: start: 20081204
  3. PLACEBO [Suspect]
     Indication: RHEUMATOID ARTHRITIS
     Dosage: FREQUENCY: DAY 1 AND DAY 15
     Route: 042
     Dates: start: 20070530, end: 20071128
  4. PLACEBO [Suspect]
     Indication: RHEUMATOID ARTHRITIS
     Dosage: FREQUENCY: DAY 1 AND DAY 15
     Route: 042
     Dates: start: 20070530, end: 20071128
  5. PLACEBO [Suspect]
     Indication: RHEUMATOID ARTHRITIS
     Dosage: FREQUENCY: DAY 1 AND DAY 15
     Route: 042
     Dates: start: 20070530, end: 20071128
  6. BLINDED THERAPY [Suspect]
     Indication: RHEUMATOID ARTHRITIS
     Dosage: FREQUENCY: 1 IN 24 WEEK
     Route: 042
     Dates: start: 20080430, end: 20081009
  7. METHOTREXATE [Concomitant]
     Dates: start: 20060920, end: 20081005
  8. FOLIC ACID [Concomitant]
     Dates: start: 20060621
  9. TYLENOL [Concomitant]
     Dates: start: 200703
  10. MULTIVITAMINS [Concomitant]
     Dates: start: 2004
  11. CALCIUM/VITAMIN D [Concomitant]
     Dates: start: 2004
  12. CELEBREX [Concomitant]
     Dates: start: 20060419
  13. ACTONEL [Concomitant]
     Dates: start: 20061006

REACTIONS (5)
  - Tachypnoea [Unknown]
  - Nausea [Unknown]
  - Vomiting [Unknown]
  - Abdominal pain [Unknown]
  - Dyspnoea [Unknown]
